FAERS Safety Report 21058115 (Version 6)
Quarter: 2022Q3

REPORT INFORMATION
  Report Type: Report from Study
  Country: CL (occurrence: CL)
  Receive Date: 20220708
  Receipt Date: 20220910
  Transmission Date: 20221026
  Serious: Yes (Hospitalization, Disabling, Other)
  Sender: FDA-Public Use
  Company Number: CL-NOVARTISPH-NVSC2022CL153340

PATIENT
  Age: 77 Year
  Sex: Female

DRUGS (11)
  1. COSENTYX [Suspect]
     Active Substance: SECUKINUMAB
     Indication: Psoriatic arthropathy
     Dosage: 300 MG, QMO
     Route: 058
     Dates: start: 20201110
  2. FUROSEMIDE [Concomitant]
     Active Substance: FUROSEMIDE
     Indication: Product used for unknown indication
     Dosage: 40 MG, Q24H (40MG TABLET EVERY 24 FOR 30 DAYS)
     Route: 048
  3. ACETAMINOPHEN [Concomitant]
     Active Substance: ACETAMINOPHEN
     Indication: Product used for unknown indication
     Dosage: 2 DOSAGE FORM, Q24H (500MG TABLET, 2 TABLETS EVERY 24 HOURS FOR 30 DAYS)
     Route: 048
  4. METFORMIN [Concomitant]
     Active Substance: METFORMIN HYDROCHLORIDE
     Indication: Product used for unknown indication
     Dosage: 1 DOSAGE FORM, Q12H (1 TABLET EVERY 12 HOURS FOR 30 DAYS)
     Route: 048
  5. OMEPRAZOLE [Concomitant]
     Active Substance: OMEPRAZOLE
     Indication: Product used for unknown indication
     Dosage: 1 DOSAGE FORM, Q24H (20MG CAPSULE, 1 CAPSULE EVERY 24 HOURS FOR 30 DAYS)
     Route: 048
  6. METHOTREXATE [Concomitant]
     Active Substance: METHOTREXATE
     Indication: Product used for unknown indication
     Dosage: 6 DOSAGE FORM, QW (2,5MG, 6 TABLETS PER WEEK)
     Route: 065
  7. LOSARTAN [Concomitant]
     Active Substance: LOSARTAN
     Indication: Product used for unknown indication
     Dosage: 1 DOSAGE FORM, Q12H (1 TABLET EVERY 12 HOURS FOR 30 DAYS)
     Route: 048
  8. VITDE [Concomitant]
     Indication: Product used for unknown indication
     Dosage: (500 OF 500 IU TABLET)
     Route: 065
  9. ATORVASTATIN [Concomitant]
     Active Substance: ATORVASTATIN
     Indication: Product used for unknown indication
     Dosage: 1 DOSAGE FORM, Q24H (1 TABLET EVERY 24 HOURS FOR 30 DAYS)
     Route: 048
  10. GLYBURIDE [Concomitant]
     Active Substance: GLYBURIDE
     Indication: Product used for unknown indication
     Dosage: 1 DOSAGE FORM, Q24H (1 TABLET EVERY 24 HOURS FOR 30 DAY)
     Route: 048
  11. CALCIUM CARBONATE [Concomitant]
     Active Substance: CALCIUM CARBONATE
     Indication: Product used for unknown indication
     Dosage: 1 DOSAGE FORM, QD (450-500MG ONE PER DAY FOR 1 MONTH)
     Route: 065

REACTIONS (13)
  - Myocardial infarction [Not Recovered/Not Resolved]
  - Fatigue [Unknown]
  - Discomfort [Unknown]
  - Pain in extremity [Not Recovered/Not Resolved]
  - Chest pain [Unknown]
  - Anxiety [Unknown]
  - Fear of death [Unknown]
  - Depression [Unknown]
  - Gait disturbance [Unknown]
  - Hypokinesia [Unknown]
  - General physical health deterioration [Unknown]
  - Pain [Unknown]
  - Bone disorder [Unknown]

NARRATIVE: CASE EVENT DATE: 20220617
